FAERS Safety Report 8020351-1 (Version None)
Quarter: 2012Q1

REPORT INFORMATION
  Report Type: 
  Country: None (occurrence: None)
  Receive Date: 20120103
  Receipt Date: 20111219
  Transmission Date: 20120608
  Serious: Yes (Life-Threatening, Hospitalization)
  Sender: FDA-Public Use
  Company Number: JP-ROCHE-1007001

PATIENT
  Sex: Female
  Weight: 40 kg

DRUGS (10)
  1. ACTEMRA [Suspect]
     Route: 041
     Dates: start: 20110907, end: 20111005
  2. CALFINA [Concomitant]
     Route: 048
  3. CLARITHROMYCIN [Concomitant]
     Route: 048
  4. ALENDRONATE SODIUM [Concomitant]
     Route: 048
  5. MAGNESIUM OXIDE [Concomitant]
     Route: 048
  6. PREDNISOLONE [Concomitant]
     Indication: RHEUMATOID ARTHRITIS
     Route: 048
  7. FOLIC ACID [Concomitant]
     Route: 048
  8. CALCIUM ASPARTATE [Concomitant]
     Route: 048
  9. ACTEMRA [Suspect]
     Indication: RHEUMATOID ARTHRITIS
     Dosage: DOSAGE IS UNCERTAIN.
     Route: 041
     Dates: start: 20110209, end: 20110502
  10. METHOTREXATE [Concomitant]
     Route: 048

REACTIONS (2)
  - PLEURISY [None]
  - LUNG INFECTION PSEUDOMONAL [None]
